FAERS Safety Report 10126931 (Version 2)
Quarter: 2014Q2

REPORT INFORMATION
  Report Type: Spontaneous
  Country: US (occurrence: US)
  Receive Date: 20140428
  Receipt Date: 20140617
  Transmission Date: 20141212
  Serious: Yes (Other)
  Sender: FDA-Public Use
  Company Number: US-AMGEN-USASP2014029551

PATIENT
  Age: 51 Year
  Sex: Female
  Weight: 84.35 kg

DRUGS (3)
  1. ENBREL [Suspect]
     Indication: RHEUMATOID ARTHRITIS
     Dosage: 50 MG, QWK
     Route: 058
     Dates: start: 20130730
  2. PREDNISONE [Concomitant]
     Indication: RHEUMATOID ARTHRITIS
     Dosage: 5 UNK, UNK
     Route: 048
     Dates: start: 201304
  3. MTX                                /00113801/ [Concomitant]
     Indication: RHEUMATOID ARTHRITIS
     Dosage: 15 UNK, UNK
     Route: 048
     Dates: start: 201304

REACTIONS (3)
  - Tremor [Recovered/Resolved]
  - Drug ineffective [Unknown]
  - Pain [Unknown]
